FAERS Safety Report 6443847-2 (Version None)
Quarter: 2009Q4

REPORT INFORMATION
  Report Type: 
  Country: None (occurrence: None)
  Receive Date: 20091113
  Receipt Date: 20091029
  Transmission Date: 20100525
  Serious: Yes (Other)
  Sender: FDA-Public Use
  Company Number: 001701

PATIENT
  Sex: Female

DRUGS (6)
  1. NEUPRO [Suspect]
     Indication: PARKINSON'S DISEASE
     Dosage: SEE IMAGE
     Route: 062
     Dates: start: 20090827, end: 20090910
  2. NEUPRO [Suspect]
     Indication: PARKINSON'S DISEASE
     Dosage: SEE IMAGE
     Route: 062
     Dates: start: 20090911, end: 20091001
  3. NEUPRO [Suspect]
     Indication: PARKINSON'S DISEASE
     Dosage: SEE IMAGE
     Route: 062
     Dates: start: 20090615
  4. CALCICHEW /00108001/ [Concomitant]
  5. MEBEVERINE [Concomitant]
  6. DOMPERIDONE [Concomitant]

REACTIONS (13)
  - ABDOMINAL DISTENSION [None]
  - ABDOMINAL PAIN UPPER [None]
  - ARRHYTHMIA [None]
  - CHROMATOPSIA [None]
  - CONSTIPATION [None]
  - DECREASED APPETITE [None]
  - DRY MOUTH [None]
  - DYSGEUSIA [None]
  - FATIGUE [None]
  - LETHARGY [None]
  - NAUSEA [None]
  - SLEEP DISORDER [None]
  - WEIGHT DECREASED [None]
